FAERS Safety Report 5083098-X (Version None)
Quarter: 2006Q3

REPORT INFORMATION
  Report Type: 
  Country: None (occurrence: None)
  Receive Date: 20060814
  Receipt Date: 20060731
  Transmission Date: 20061208
  Serious: Yes (Death, Hospitalization)
  Sender: FDA-Public Use
  Company Number: 2006092020

PATIENT
  Age: 72 Year
  Sex: Male
  Weight: 77 kg

DRUGS (11)
  1. SUTENT [Suspect]
     Indication: METASTATIC RENAL CELL CARCINOMA
     Dosage: 37.5 MG (37.5 MG, DIALY, INTERVAL: 4 WKS ON, 2 WKS OFF), ORAL
     Route: 048
     Dates: start: 20060704, end: 20060725
  2. ALDACTAZINE (ALTIZIDE, SPIRONOLACTONE) [Concomitant]
  3. AMIODARONE (AMIODARONE) [Concomitant]
  4. LOSARTAN POSTASSIUM [Concomitant]
  5. OL-AMINE (MINERALS NOS, VITAMINS NOS) [Concomitant]
  6. DICLOFENAC SODIUM [Concomitant]
  7. ALLOPURINOL [Concomitant]
  8. LORMETAZEPAM (LORMETAZEPAM) [Concomitant]
  9. ACETAMINOPHEN W/ CODEINE [Concomitant]
  10. ZOLEDRONIC ACID (ZOLEDRONIC ACID) [Concomitant]
  11. BISACODYL (BISACODYL) [Concomitant]

REACTIONS (15)
  - ALANINE AMINOTRANSFERASE INCREASED [None]
  - ANOREXIA [None]
  - ASPARTATE AMINOTRANSFERASE INCREASED [None]
  - BLOOD LACTATE DEHYDROGENASE INCREASED [None]
  - CONSTIPATION [None]
  - DISSEMINATED INTRAVASCULAR COAGULATION [None]
  - DYSPNOEA [None]
  - FAECALOMA [None]
  - HAEMOLYTIC URAEMIC SYNDROME [None]
  - HYPERBILIRUBINAEMIA [None]
  - ORAL INTAKE REDUCED [None]
  - RECTAL HAEMORRHAGE [None]
  - STOMATITIS [None]
  - THROMBOCYTOPENIA [None]
  - VOMITING [None]
